FAERS Safety Report 23160162 (Version 1)
Quarter: 2023Q4

REPORT INFORMATION
  Report Type: Report from Study
  Country: ES (occurrence: ES)
  Receive Date: 20231108
  Receipt Date: 20231108
  Transmission Date: 20240110
  Serious: Yes (Hospitalization)
  Sender: FDA-Public Use
  Company Number: ES-PFIZER INC-PV202300180056

PATIENT
  Age: 11 Year
  Sex: Male
  Weight: 39.8 kg

DRUGS (14)
  1. IRINOTECAN HYDROCHLORIDE [Suspect]
     Active Substance: IRINOTECAN HYDROCHLORIDE
     Indication: Medulloblastoma
     Dosage: 50 MG/M2, DAILY
     Route: 042
     Dates: start: 20210621, end: 20210621
  2. IRINOTECAN HYDROCHLORIDE [Suspect]
     Active Substance: IRINOTECAN HYDROCHLORIDE
     Dosage: 50 MG/M2, DAILY
     Route: 042
     Dates: start: 20210622, end: 20210622
  3. IRINOTECAN HYDROCHLORIDE [Suspect]
     Active Substance: IRINOTECAN HYDROCHLORIDE
     Dosage: 50 MG/M2, DAILY
     Route: 042
     Dates: start: 20210623, end: 20210623
  4. IRINOTECAN HYDROCHLORIDE [Suspect]
     Active Substance: IRINOTECAN HYDROCHLORIDE
     Dosage: 50 MG/M2, DAILY
     Route: 042
     Dates: start: 20210624, end: 20210624
  5. IRINOTECAN HYDROCHLORIDE [Suspect]
     Active Substance: IRINOTECAN HYDROCHLORIDE
     Dosage: 50 MG/M2, DAILY
     Route: 042
     Dates: start: 20210625, end: 20210625
  6. TEMOZOLOMIDE [Suspect]
     Active Substance: TEMOZOLOMIDE
     Indication: Medulloblastoma
     Dosage: 124 MG, DAILY
     Route: 048
     Dates: start: 20210621, end: 20210625
  7. TEMOZOLOMIDE [Suspect]
     Active Substance: TEMOZOLOMIDE
     Dosage: 124 MG, DAILY
     Route: 048
     Dates: start: 20210621, end: 20210625
  8. TEMOZOLOMIDE [Suspect]
     Active Substance: TEMOZOLOMIDE
     Dosage: 124 MG, DAILY
     Route: 048
     Dates: start: 20210621, end: 20210625
  9. ABEMACICLIB [Suspect]
     Active Substance: ABEMACICLIB
     Indication: Medulloblastoma
     Dosage: 75 MG, BID
     Route: 048
     Dates: start: 20210621, end: 20210628
  10. CEFIXIME [Concomitant]
     Active Substance: CEFIXIME
     Indication: Prophylaxis
     Dosage: UNK
     Dates: start: 20210617, end: 20210725
  11. LOPERAMIDE [Concomitant]
     Active Substance: LOPERAMIDE
     Indication: Diarrhoea
     Dosage: UNK
     Dates: start: 20210625
  12. SULFAMETHOXAZOLE\TRIMETHOPRIM [Concomitant]
     Active Substance: SULFAMETHOXAZOLE\TRIMETHOPRIM
     Indication: Prophylaxis
     Dosage: UNK
     Dates: start: 20210628
  13. ACETAMINOPHEN [Concomitant]
     Active Substance: ACETAMINOPHEN
     Indication: Abdominal pain
     Dosage: UNK
     Dates: start: 20210703
  14. METAMIZOLE [Concomitant]
     Active Substance: METAMIZOLE
     Indication: Abdominal pain
     Dosage: UNK
     Dates: start: 20210703, end: 20210709

REACTIONS (1)
  - Febrile neutropenia [Recovered/Resolved]

NARRATIVE: CASE EVENT DATE: 20210703
